FAERS Safety Report 7036052-2 (Version None)
Quarter: 2010Q4

REPORT INFORMATION
  Report Type: 
  Country: None (occurrence: None)
  Receive Date: 20101008
  Receipt Date: 20101005
  Transmission Date: 20110411
  Serious: Yes (Death, Hospitalization)
  Sender: FDA-Public Use
  Company Number: ES-ABBOTT-10P-144-0675464-00

PATIENT
  Age: 47 Year
  Sex: Female

DRUGS (2)
  1. HUMIRA [Suspect]
     Indication: CROHN'S DISEASE
     Route: 058
     Dates: start: 20100801
  2. ADALIMUMAB (HUMIRA) (ABBOTT) [Suspect]
     Indication: CROHN'S DISEASE
     Route: 058
     Dates: end: 20100801

REACTIONS (4)
  - ANORECTAL DISORDER [None]
  - ANURIA [None]
  - CROHN'S DISEASE [None]
  - SEPSIS [None]
